FAERS Safety Report 22079200 (Version 13)
Quarter: 2024Q1

REPORT INFORMATION
  Report Type: Spontaneous
  Country: US (occurrence: US)
  Receive Date: 20230309
  Receipt Date: 20240301
  Transmission Date: 20240409
  Serious: Yes (Other)
  Sender: FDA-Public Use
  Company Number: US-PFIZER INC-PV202300014383

PATIENT
  Age: 59 Year
  Sex: Female

DRUGS (2)
  1. IBRANCE [Suspect]
     Active Substance: PALBOCICLIB
     Indication: Breast cancer metastatic
     Dosage: 125 MG
  2. IBRANCE [Suspect]
     Active Substance: PALBOCICLIB
     Dosage: TAKE 1 TAB DAILY FOR 21 DAYS ON, THEN 7 DAYS OFF
     Route: 048

REACTIONS (14)
  - Blindness [Unknown]
  - Vitamin D deficiency [Unknown]
  - Musculoskeletal discomfort [Unknown]
  - Irritability [Unknown]
  - Memory impairment [Unknown]
  - Hypersomnia [Unknown]
  - Eye pain [Unknown]
  - Illness [Unknown]
  - Malaise [Unknown]
  - Dry eye [Unknown]
  - Vomiting [Unknown]
  - Fatigue [Unknown]
  - Neoplasm progression [Unknown]
  - Migraine [Unknown]

NARRATIVE: CASE EVENT DATE: 20221208
